FAERS Safety Report 8108601-4 (Version None)
Quarter: 2012Q1

REPORT INFORMATION
  Report Type: 
  Country: None (occurrence: None)
  Receive Date: 20120202
  Receipt Date: 20120120
  Transmission Date: 20120608
  Serious: Yes (Hospitalization, Other)
  Sender: FDA-Public Use
  Company Number: PHHY2011JP107396

PATIENT
  Sex: Male

DRUGS (9)
  1. CLOZARIL [Suspect]
     Indication: SCHIZOPHRENIA
     Dosage: 200 MG, DAILY
     Route: 048
     Dates: start: 20111027
  2. LASIX [Concomitant]
     Dosage: 20 MG, UNK
     Route: 048
     Dates: start: 20111216
  3. CLARITHROMYCIN [Concomitant]
     Dosage: 200 MG, 2 TABLETS TWICE DAILY
  4. LITHIUM CARBONATE [Concomitant]
     Dosage: 300 MG, UNK
     Route: 048
  5. LITHIUM CARBONATE [Concomitant]
     Dosage: 400 MG, UNK
     Route: 048
     Dates: end: 20111203
  6. ZITHROMAX [Concomitant]
     Dosage: 500 MG, UNK
     Route: 048
     Dates: start: 20111205, end: 20111207
  7. LEVOFLOXACIN [Concomitant]
     Dosage: 250 MG, ONCE DAILY
     Dates: start: 20111126, end: 20111202
  8. FLOMOX [Concomitant]
     Dosage: 300 MG, 3 TABLETS DAILY
     Dates: start: 20111117, end: 20111125
  9. FLOMOX [Concomitant]
     Dosage: 100 MG, 3 TABLETS ONCE DAILY
     Dates: start: 20111216, end: 20111218

REACTIONS (19)
  - HAEMATOCRIT DECREASED [None]
  - LYMPHOCYTE COUNT DECREASED [None]
  - FEELING HOT [None]
  - WHITE BLOOD CELL COUNT INCREASED [None]
  - BLOOD CREATININE INCREASED [None]
  - BLOOD SODIUM DECREASED [None]
  - HAEMOGLOBIN DECREASED [None]
  - CELLULITIS [None]
  - OEDEMA PERIPHERAL [None]
  - PYREXIA [None]
  - ERYTHEMA [None]
  - BLOOD ALBUMIN DECREASED [None]
  - BLOOD CHLORIDE DECREASED [None]
  - NEUTROPHIL COUNT INCREASED [None]
  - PLATELET COUNT INCREASED [None]
  - C-REACTIVE PROTEIN INCREASED [None]
  - INFECTION [None]
  - RENAL IMPAIRMENT [None]
  - RED BLOOD CELL COUNT DECREASED [None]
